FAERS Safety Report 6544827-9 (Version None)
Quarter: 2010Q1

REPORT INFORMATION
  Report Type: 
  Country: None (occurrence: None)
  Receive Date: 20100121
  Receipt Date: 20100111
  Transmission Date: 20100710
  Serious: Yes (Other)
  Sender: FDA-Public Use
  Company Number: US-JNJFOC-20100107403

PATIENT
  Sex: Male

DRUGS (5)
  1. FENTANYL [Suspect]
     Indication: PAIN
     Route: 062
  2. FENTANYL [Suspect]
     Route: 062
  3. HYDROCODONE [Suspect]
     Indication: DRUG USE FOR UNKNOWN INDICATION
     Route: 048
  4. FENTORA [Suspect]
     Indication: DRUG USE FOR UNKNOWN INDICATION
     Route: 048
  5. OXYMORPHONE [Suspect]
     Indication: DRUG USE FOR UNKNOWN INDICATION
     Route: 042

REACTIONS (7)
  - ANXIETY [None]
  - CONSTIPATION [None]
  - FLUID RETENTION [None]
  - HEART RATE INCREASED [None]
  - HYPERTENSION [None]
  - OXYGEN SATURATION DECREASED [None]
  - PNEUMONIA [None]
